FAERS Safety Report 11722168 (Version 1)
Quarter: 2015Q4

REPORT INFORMATION
  Report Type: Spontaneous
  Country: None (occurrence: None)
  Receive Date: 20151110
  Receipt Date: 20151110
  Transmission Date: 20160304
  Serious: Yes (Other)
  Sender: FDA-Public Use
  Company Number: None

PATIENT
  Age: 56 Year
  Sex: Male
  Weight: 120 kg

DRUGS (2)
  1. ASPIRIN. [Concomitant]
     Active Substance: ASPIRIN
  2. CHLORHEXIDINE 4% [Suspect]
     Active Substance: CHLORHEXIDINE
     Indication: PREOPERATIVE CARE
     Dosage: ONE TIME USE

REACTIONS (7)
  - Insomnia [None]
  - Application site erythema [None]
  - Application site pruritus [None]
  - Application site pain [None]
  - Application site rash [None]
  - No therapeutic response [None]
  - Application site swelling [None]

NARRATIVE: CASE EVENT DATE: 20151109
